FAERS Safety Report 9343387 (Version 1)
Quarter: 2013Q2

REPORT INFORMATION
  Report Type: Spontaneous
  Country: US (occurrence: US)
  Receive Date: 20130612
  Receipt Date: 20130612
  Transmission Date: 20140414
  Serious: No
  Sender: FDA-Public Use
  Company Number: US-B.I. PHARMACEUTICALS,INC./RIDGEFIELD-2013-BI-16175BP

PATIENT
  Sex: Female

DRUGS (4)
  1. MICARDIS HCT TABLETS [Suspect]
     Indication: HYPERTENSION
     Dosage: STRENGTH: 80 MG / 12.5 MG; DAILY DOSE: 80 MG/12.5 MG
     Route: 048
     Dates: start: 2003
  2. SEROQUEL [Concomitant]
     Indication: NIGHTMARE
     Dosage: 400 MG
     Route: 048
     Dates: start: 200801
  3. PRAZOSIN [Concomitant]
     Indication: NIGHTMARE
     Route: 048
     Dates: start: 201101
  4. EFFEXOR XR [Concomitant]
     Indication: DEPRESSION
     Dosage: 300 MG
     Route: 048
     Dates: start: 2006

REACTIONS (2)
  - Temporomandibular joint syndrome [Not Recovered/Not Resolved]
  - VIIth nerve paralysis [Not Recovered/Not Resolved]
